FAERS Safety Report 5169056-5 (Version None)
Quarter: 2006Q4

REPORT INFORMATION
  Report Type: 
  Country: None (occurrence: None)
  Receive Date: 20061211
  Receipt Date: 20061205
  Transmission Date: 20070319
  Serious: Yes (Death)
  Sender: FDA-Public Use
  Company Number: 2006AP05841

PATIENT
  Age: 86 Year
  Sex: Female

DRUGS (3)
  1. XYLOCAINE W/ EPINEPHRINE [Suspect]
     Indication: LOCAL ANAESTHESIA
     Route: 065
  2. XYLOCAINE [Suspect]
     Indication: LOCAL ANAESTHESIA
     Route: 061
  3. XYLOCAINE [Suspect]
     Route: 061

REACTIONS (1)
  - CARDIAC ARREST [None]
